FAERS Safety Report 4517120-3 (Version None)
Quarter: 2004Q4

REPORT INFORMATION
  Report Type: 
  Country: None (occurrence: None)
  Receive Date: 20041007
  Receipt Date: 20040817
  Transmission Date: 20050328
  Serious: Yes (Hospitalization)
  Sender: FDA-Public Use
  Company Number: 234128K04USA

PATIENT
  Age: 47 Year
  Sex: Female
  Weight: 80.7403 kg

DRUGS (2)
  1. REBIF [Suspect]
     Indication: MULTIPLE SCLEROSIS
     Dosage: 44 MCG, 3 IN 1 WEEKS
     Dates: start: 20040129
  2. PAXIL [Concomitant]

REACTIONS (6)
  - ANXIETY [None]
  - CONDITION AGGRAVATED [None]
  - DEPRESSION [None]
  - INJECTION SITE HAEMORRHAGE [None]
  - INJECTION SITE PAIN [None]
  - INJECTION SITE REACTION [None]
